FAERS Safety Report 23595451 (Version 1)
Quarter: 2024Q1

REPORT INFORMATION
  Report Type: Spontaneous
  Country: US (occurrence: US)
  Receive Date: 20240305
  Receipt Date: 20240305
  Transmission Date: 20240410
  Serious: Yes (Other)
  Sender: FDA-Public Use
  Company Number: US-MYLANLABS-2024M1019559

PATIENT
  Age: 70 Year
  Sex: Male

DRUGS (12)
  1. METHOTREXATE [Suspect]
     Active Substance: METHOTREXATE
     Indication: Conjunctival scar
     Dosage: UNK
     Route: 065
  2. METHOTREXATE [Suspect]
     Active Substance: METHOTREXATE
     Indication: Conjunctivitis
  3. MYCOPHENOLATE MOFETIL [Suspect]
     Active Substance: MYCOPHENOLATE MOFETIL
     Indication: Conjunctival scar
     Dosage: UNK
     Route: 065
  4. MYCOPHENOLATE MOFETIL [Suspect]
     Active Substance: MYCOPHENOLATE MOFETIL
     Indication: Conjunctivitis
  5. TRIAMCINOLONE [Suspect]
     Active Substance: TRIAMCINOLONE
     Indication: Conjunctival scar
     Dosage: 0.1 MILLILITER (RECEIVED 0.1ML VOLUME OF CONCENTRATION 40MG/ML)
     Route: 026
  6. TRIAMCINOLONE [Suspect]
     Active Substance: TRIAMCINOLONE
     Indication: Conjunctivitis
  7. RITUXIMAB [Suspect]
     Active Substance: RITUXIMAB
     Indication: Conjunctival scar
     Dosage: 375 MILLIGRAM/SQ. METER, QW (RECEIVED INFUSION ONCE IN A WEEK FOR EIGHT WEEKS) (INFUSION)
     Route: 065
  8. RITUXIMAB [Suspect]
     Active Substance: RITUXIMAB
     Indication: Conjunctivitis
     Dosage: 375 MILLIGRAM/SQ. METER, MONTHLY (INFUSION)
     Route: 065
  9. LOTEPREDNOL ETABONATE [Suspect]
     Active Substance: LOTEPREDNOL ETABONATE
     Indication: Conjunctival scar
     Dosage: UNK
     Route: 065
  10. LOTEPREDNOL ETABONATE [Suspect]
     Active Substance: LOTEPREDNOL ETABONATE
     Indication: Conjunctivitis
  11. Immunoglobulin [Concomitant]
     Indication: Conjunctival scar
     Dosage: UNK UNK, MONTHLY (RECEIVED INFUSION OF 2G/KG)
     Route: 042
  12. Immunoglobulin [Concomitant]
     Indication: Conjunctivitis

REACTIONS (2)
  - Drug ineffective for unapproved indication [Unknown]
  - Off label use [Unknown]
